FAERS Safety Report 5388942-4 (Version None)
Quarter: 2007Q3

REPORT INFORMATION
  Report Type: 
  Country: None (occurrence: None)
  Receive Date: 20070717
  Receipt Date: 20070710
  Transmission Date: 20080115
  Serious: Yes (Other)
  Sender: FDA-Public Use
  Company Number: PHEH2007US09539

PATIENT
  Age: 88 Year
  Sex: Male

DRUGS (1)
  1. ZOMETA [Suspect]
     Indication: METASTASES TO BONE
     Dosage: MONTHLY
     Dates: end: 20050101

REACTIONS (6)
  - BIOPSY SKIN [None]
  - BONE DISORDER [None]
  - NUCLEAR MAGNETIC RESONANCE IMAGING ABNORMAL [None]
  - OSTEOMYELITIS [None]
  - SKIN CANCER [None]
  - SKIN LESION [None]
